FAERS Safety Report 5319137-8 (Version None)
Quarter: 2007Q1

REPORT INFORMATION
  Report Type: 
  Country: None (occurrence: None)
  Receive Date: 20070208
  Receipt Date: 20061030
  Transmission Date: 20070707
  Serious: Yes (Hospitalization, Other)
  Sender: FDA-Public Use
  Company Number: 2006132381

PATIENT
  Age: 49 Year
  Sex: Female
  Weight: 111.1313 kg

DRUGS (4)
  1. MYCOBUTIN [Suspect]
     Indication: HELICOBACTER INFECTION
     Dosage: 300 MG (150 MG, 2 IN 1 D)
     Dates: start: 20061006, end: 20061015
  2. LEVAQUIN [Suspect]
     Indication: HELICOBACTER INFECTION
     Dates: start: 20061006, end: 20061015
  3. NEXIUM [Suspect]
     Indication: HELICOBACTER INFECTION
     Dates: start: 20061006, end: 20061015
  4. BISMUTH (BISMUTH) [Suspect]
     Indication: HELICOBACTER INFECTION
     Dates: start: 20061006, end: 20061015

REACTIONS (2)
  - MYALGIA [None]
  - WHITE BLOOD CELL COUNT DECREASED [None]
